FAERS Safety Report 15640170 (Version 1)
Quarter: 2018Q4

REPORT INFORMATION
  Report Type: Spontaneous
  Country: US (occurrence: US)
  Receive Date: 20181120
  Receipt Date: 20181120
  Transmission Date: 20190205
  Serious: Yes (Life-Threatening, Hospitalization, Other)
  Sender: FDA-Public Use
  Company Number: US-BIO-PHARM-2018RIS00517

PATIENT
  Age: 41 Year
  Sex: Female

DRUGS (1)
  1. POTASSIUM CHLORIDE. [Suspect]
     Active Substance: POTASSIUM CHLORIDE
     Dosage: UP TO 80-20 MEQ TABLETS, ONCE
     Route: 048

REACTIONS (6)
  - Apnoea [Recovered/Resolved]
  - Suicide attempt [Recovered/Resolved]
  - Hyperkalaemia [Recovered/Resolved]
  - Intentional overdose [Recovered/Resolved]
  - Pulse absent [Recovered/Resolved]
  - Toxicity to various agents [Recovered/Resolved]
